FAERS Safety Report 18538861 (Version 1)
Quarter: 2020Q4

REPORT INFORMATION
  Report Type: Spontaneous
  Country: US (occurrence: US)
  Receive Date: 20201124
  Receipt Date: 20201124
  Transmission Date: 20210114
  Serious: No
  Sender: FDA-Public Use
  Company Number: US-ACCORD-179137

PATIENT
  Sex: Male
  Weight: 74.84 kg

DRUGS (1)
  1. FINASTERIDE ACCORD [Suspect]
     Active Substance: FINASTERIDE
     Indication: ALOPECIA
     Dosage: STRENGTH: 1 MG
     Route: 048
     Dates: start: 202002, end: 202003

REACTIONS (3)
  - Product substitution issue [Unknown]
  - Incorrect dose administered [Unknown]
  - Drug ineffective [Unknown]
